FAERS Safety Report 16843605 (Version 1)
Quarter: 2019Q3

REPORT INFORMATION
  Report Type: Spontaneous
  Country: JP (occurrence: JP)
  Receive Date: 20190924
  Receipt Date: 20190924
  Transmission Date: 20191005
  Serious: Yes (Other)
  Sender: FDA-Public Use
  Company Number: JP-VIFOR (INTERNATIONAL) INC.-VIT-2019-05968

PATIENT
  Age: 53 Year
  Sex: Female

DRUGS (13)
  1. VELPHORO [Suspect]
     Active Substance: FERRIC OXYHYDROXIDE
     Indication: HYPERPHOSPHATAEMIA
     Route: 048
     Dates: start: 20190520, end: 2019
  2. FOSRENOL [Concomitant]
     Active Substance: LANTHANUM CARBONATE
     Dates: start: 2019, end: 2019
  3. MYSLEE [Concomitant]
     Active Substance: ZOLPIDEM TARTRATE
     Route: 048
  4. VELPHORO [Suspect]
     Active Substance: FERRIC OXYHYDROXIDE
     Route: 048
     Dates: start: 2019, end: 2019
  5. LANSOPRAZOLE. [Concomitant]
     Active Substance: LANSOPRAZOLE
     Route: 048
  6. RIVOTRIL [Concomitant]
     Active Substance: CLONAZEPAM
     Route: 048
  7. FOSRENOL [Concomitant]
     Active Substance: LANTHANUM CARBONATE
     Dates: start: 2019
  8. CALTAN [Concomitant]
     Active Substance: CALCIUM CARBONATE
     Dates: start: 2019
  9. AMLODIPINE BESILATE [Concomitant]
     Active Substance: AMLODIPINE BESYLATE
     Route: 048
  10. AZILVA [Concomitant]
     Active Substance: AZILSARTAN KAMEDOXOMIL
     Route: 048
  11. BELSOMRA [Concomitant]
     Active Substance: SUVOREXANT
     Route: 048
  12. DOXAZOSIN MESILATE [Concomitant]
     Active Substance: DOXAZOSIN MESYLATE
     Route: 048
  13. NALFURAFINE HYDROCHLORIDE [Concomitant]
     Active Substance: NALFURAFINE HYDROCHLORIDE
     Route: 048

REACTIONS (3)
  - Blister [Unknown]
  - Oedema peripheral [Recovered/Resolved]
  - Renal transplant [Unknown]

NARRATIVE: CASE EVENT DATE: 2019
